FAERS Safety Report 17411654 (Version 5)
Quarter: 2022Q1

REPORT INFORMATION
  Report Type: Spontaneous
  Country: PL (occurrence: PL)
  Receive Date: 20200213
  Receipt Date: 20220322
  Transmission Date: 20220423
  Serious: Yes (Other)
  Sender: FDA-Public Use
  Company Number: PL-ORION CORPORATION ORION PHARMA-DEPR2020-0002

PATIENT
  Age: 25 Year
  Sex: Female

DRUGS (20)
  1. TOPIRAMATE [Suspect]
     Active Substance: TOPIRAMATE
     Indication: Seizure
     Dosage: UNK
     Route: 065
  2. TOPIRAMATE [Suspect]
     Active Substance: TOPIRAMATE
     Indication: Partial seizures
  3. OXCARBAZEPINE [Suspect]
     Active Substance: OXCARBAZEPINE
     Indication: Product used for unknown indication
     Dosage: UNK
     Route: 065
  4. LACOSAMIDE [Suspect]
     Active Substance: LACOSAMIDE
     Indication: Partial seizures
     Dosage: DOSES GRADUALLY INCREASING TO 400 MG PER DAY
     Route: 065
  5. LACOSAMIDE [Suspect]
     Active Substance: LACOSAMIDE
     Indication: Partial seizures
  6. LEVETIRACETAM [Suspect]
     Active Substance: LEVETIRACETAM
     Indication: Partial seizures
     Dosage: 3 GRAM, ONCE A DAY
     Route: 065
  7. VALPROIC ACID [Suspect]
     Active Substance: VALPROIC ACID
     Indication: Partial seizures
     Dosage: UNK
     Route: 065
  8. VALPROIC ACID [Suspect]
     Active Substance: VALPROIC ACID
     Indication: Seizure
  9. TIAGABINE [Suspect]
     Active Substance: TIAGABINE
     Indication: Partial seizures
     Dosage: DOSES INCREASING TO 20 MG DAILY
     Route: 005
  10. TIAGABINE [Suspect]
     Active Substance: TIAGABINE
     Indication: Epilepsy
  11. ETHINYL ESTRADIOL [Concomitant]
     Active Substance: ETHINYL ESTRADIOL
     Indication: Hormone replacement therapy
     Dosage: UNK
     Route: 065
  12. ETHINYL ESTRADIOL [Concomitant]
     Active Substance: ETHINYL ESTRADIOL
     Indication: Amenorrhoea
  13. NORELGESTROMIN [Concomitant]
     Active Substance: NORELGESTROMIN
     Indication: Hormone replacement therapy
     Dosage: UNK
     Route: 065
  14. NORELGESTROMIN [Concomitant]
     Active Substance: NORELGESTROMIN
     Indication: Amenorrhoea
  15. LAMOTRIGINE [Concomitant]
     Active Substance: LAMOTRIGINE
     Indication: Partial seizures
     Dosage: 300 MILLIGRAM, ONCE A DAY
     Route: 065
  16. LAMOTRIGINE [Concomitant]
     Active Substance: LAMOTRIGINE
     Indication: Epilepsy
     Dosage: GRADUALLY INCREASING DOSES UP TO 250 MG PER DAY
     Route: 065
  17. LAMOTRIGINE [Concomitant]
     Active Substance: LAMOTRIGINE
     Indication: Seizure
     Dosage: DOSES GRADUALLY INCREASING TO 400 MG PER DAY
     Route: 065
  18. METFORMIN [Concomitant]
     Active Substance: METFORMIN HYDROCHLORIDE
     Indication: Insulin resistance
     Dosage: UNK
     Route: 016
  19. ETHINYL ESTRADIOL\NORELGESTROMIN [Concomitant]
     Active Substance: ETHINYL ESTRADIOL\NORELGESTROMIN
     Indication: Hormone replacement therapy
     Dosage: UNK
     Route: 065
  20. ETHINYL ESTRADIOL\NORELGESTROMIN [Concomitant]
     Active Substance: ETHINYL ESTRADIOL\NORELGESTROMIN
     Indication: Amenorrhoea

REACTIONS (9)
  - Seizure [Recovered/Resolved]
  - Disturbance in attention [Recovered/Resolved]
  - Drug ineffective [Recovered/Resolved]
  - Dizziness [Unknown]
  - Educational problem [Recovered/Resolved]
  - Product use in unapproved indication [Unknown]
  - Off label use [Unknown]
  - Learning disorder [Unknown]
  - Disturbance in attention [Recovered/Resolved]
